FAERS Safety Report 22640373 (Version 1)
Quarter: 2023Q2

REPORT INFORMATION
  Report Type: Spontaneous
  Country: NL (occurrence: NL)
  Receive Date: 20230626
  Receipt Date: 20230626
  Transmission Date: 20230721
  Serious: Yes (Other)
  Sender: FDA-Public Use
  Company Number: NL-OTSUKA-2023_015693

PATIENT
  Age: 9 Year
  Sex: Male

DRUGS (12)
  1. ALBUTEROL [Suspect]
     Active Substance: ALBUTEROL
     Indication: Asthma
     Dosage: UNK  (1 - 4 DOSE, 8X/DAY, IF NECESSARY)
     Dates: start: 20230320
  2. BECLOMETHASONE DIPROPIONATE [Suspect]
     Active Substance: BECLOMETHASONE DIPROPIONATE
     Indication: Asthma
     Dosage: 4 DOSAGE FORM, QD (2 DOSAGE FORM, BID )
     Dates: start: 20230320
  3. DESLORATADINE [Suspect]
     Active Substance: DESLORATADINE
     Indication: Asthma
     Dosage: 2.5 MG, PRN
     Route: 048
     Dates: start: 20230320
  4. MELATONIN [Suspect]
     Active Substance: MELATONIN
     Indication: Autism spectrum disorder
     Dosage: 0.5 MG
     Route: 048
     Dates: start: 20230320
  5. POLYETHYLENE GLYCOLS [Suspect]
     Active Substance: POLYETHYLENE GLYCOLS
     Indication: Constipation
     Dosage: UNK
     Route: 048
     Dates: start: 20230320
  6. FLUTICASONE [Suspect]
     Active Substance: FLUTICASONE
     Indication: Asthma
     Dosage: 1 DOSAGE FORM
     Route: 045
     Dates: start: 20230320
  7. CHOLECALCIFEROL [Suspect]
     Active Substance: CHOLECALCIFEROL
     Indication: Prophylaxis
     Dosage: 400 IU
     Route: 048
     Dates: start: 20230320
  8. GRANISETRON HYDROCHLORIDE [Suspect]
     Active Substance: GRANISETRON HYDROCHLORIDE
     Indication: Nausea
     Dosage: 2 MG, PRN
     Route: 048
     Dates: start: 20230508
  9. ARIPIPRAZOLE [Suspect]
     Active Substance: ARIPIPRAZOLE
     Indication: Autism spectrum disorder
     Dosage: 2.5 MG
     Route: 048
     Dates: start: 20230331
  10. CRIZOTINIB [Suspect]
     Active Substance: CRIZOTINIB
     Indication: Neoplasm malignant
     Dosage: 440 MG, QD (220 MG, BID)
     Route: 048
     Dates: start: 20230211, end: 20230523
  11. METOCLOPRAMIDE [Suspect]
     Active Substance: METOCLOPRAMIDE
     Indication: Nausea
     Dosage: 12 MG, PRN
     Route: 048
     Dates: start: 20230301
  12. KLYSMA SORBIT [Concomitant]
     Indication: Constipation
     Dosage: UNK
     Route: 054
     Dates: start: 20230327

REACTIONS (2)
  - Sinus bradycardia [Not Recovered/Not Resolved]
  - Product use in unapproved indication [Unknown]

NARRATIVE: CASE EVENT DATE: 20230331
